FAERS Safety Report 5322763-3 (Version None)
Quarter: 2007Q2

REPORT INFORMATION
  Report Type: 
  Country: None (occurrence: None)
  Receive Date: 20070511
  Receipt Date: 20070503
  Transmission Date: 20071010
  Serious: Yes (Other)
  Sender: FDA-Public Use
  Company Number: US-PFIZER INC-2006131718

PATIENT
  Sex: Female

DRUGS (1)
  1. BEXTRA [Suspect]
     Indication: INFLAMMATION

REACTIONS (5)
  - CEREBROVASCULAR ACCIDENT [None]
  - DISORIENTATION [None]
  - FALL [None]
  - MENTAL IMPAIRMENT [None]
  - THROMBOSIS [None]
